FAERS Safety Report 18871131 (Version 1)
Quarter: 2021Q1

REPORT INFORMATION
  Report Type: Report from Study
  Country: US (occurrence: US)
  Receive Date: 20210210
  Receipt Date: 20210210
  Transmission Date: 20210420
  Serious: Yes (Death, Other)
  Sender: FDA-Public Use
  Company Number: US-SUN PHARMACEUTICAL INDUSTRIES LTD-2021R1-279582

PATIENT
  Age: 31 Year
  Sex: Male

DRUGS (1)
  1. DILTIAZEM. [Suspect]
     Active Substance: DILTIAZEM
     Indication: PRODUCT USED FOR UNKNOWN INDICATION
     Route: 065

REACTIONS (8)
  - Hypotension [Fatal]
  - Hepatotoxicity [Fatal]
  - Bradycardia [Fatal]
  - Pneumonia aspiration [Fatal]
  - Coagulopathy [Fatal]
  - Blister [Fatal]
  - Atrioventricular block [Fatal]
  - Acute lung injury [Fatal]
